FAERS Safety Report 25964681 (Version 3)
Quarter: 2025Q4

REPORT INFORMATION
  Report Type: Spontaneous
  Country: US (occurrence: US)
  Receive Date: 20251027
  Receipt Date: 20251222
  Transmission Date: 20260118
  Serious: Yes (Other)
  Sender: PFIZER
  Company Number: US-PFIZER INC-202500174618

PATIENT
  Age: 64 Year
  Sex: Female
  Weight: 72.57 kg

DRUGS (2)
  1. PREMARIN [Suspect]
     Active Substance: ESTROGENS, CONJUGATED
     Indication: Oestrogen replacement therapy
     Dosage: 0.625 MG, 1X/DAY
     Route: 048
     Dates: start: 2010, end: 202508
  2. PREMARIN [Suspect]
     Active Substance: ESTROGENS, CONJUGATED
     Dosage: 0.625 MG, 1X/DAY (FOR 30 DAYS)
     Route: 048

REACTIONS (2)
  - Pelvic fracture [Recovering/Resolving]
  - Menopausal symptoms [Unknown]

NARRATIVE: CASE EVENT DATE: 20250829
